FAERS Safety Report 5579585-8 (Version None)
Quarter: 2007Q4

REPORT INFORMATION
  Report Type: 
  Country: None (occurrence: None)
  Receive Date: 20071130
  Receipt Date: 20070709
  Transmission Date: 20080405
  Serious: No
  Sender: FDA-Public Use
  Company Number: US200707002072

PATIENT
  Age: 55 Year
  Sex: Female

DRUGS (3)
  1. BYETTA [Suspect]
     Indication: TYPE 2 DIABETES MELLITUS
     Dosage: SUBCUTANEOUS ; 5 UG, 2/D, SUBCUTANEOUS
     Route: 058
     Dates: start: 20070601
  2. METFORMIN HCL [Concomitant]
  3. GLIPIZIDE [Concomitant]

REACTIONS (2)
  - BLOOD GLUCOSE DECREASED [None]
  - BLOOD POTASSIUM INCREASED [None]
